FAERS Safety Report 8423841-2 (Version None)
Quarter: 2012Q2

REPORT INFORMATION
  Report Type: 
  Country: None (occurrence: None)
  Receive Date: 20120608
  Receipt Date: 20120219
  Transmission Date: 20120825
  Serious: No
  Sender: FDA-Public Use
  Company Number: US-ASTRAZENECA-2007UW20380

PATIENT
  Age: 87 Year
  Sex: Male
  Weight: 80.3 kg

DRUGS (5)
  1. PRANDIN [Concomitant]
  2. LOVAZA [Concomitant]
  3. ATACAND [Suspect]
     Route: 048
  4. ACETYLSALICYLIC ACID SRT [Concomitant]
  5. NEXIUM [Suspect]
     Indication: GASTROOESOPHAGEAL REFLUX DISEASE
     Route: 048
     Dates: start: 20120214

REACTIONS (3)
  - HEADACHE [None]
  - POLLAKIURIA [None]
  - DIZZINESS [None]
